FAERS Safety Report 6045366-4 (Version None)
Quarter: 2009Q1

REPORT INFORMATION
  Report Type: 
  Country: None (occurrence: None)
  Receive Date: 20090121
  Receipt Date: 20090114
  Transmission Date: 20090719
  Serious: Yes (Other)
  Sender: FDA-Public Use
  Company Number: US-BAYER-200840559NA

PATIENT
  Age: 29 Year
  Sex: Female

DRUGS (1)
  1. MIRENA [Suspect]
     Indication: CONTRACEPTION
     Route: 015

REACTIONS (12)
  - ABDOMINAL PAIN [None]
  - ACNE [None]
  - ALOPECIA [None]
  - COMPLICATION OF DEVICE REMOVAL [None]
  - DIZZINESS [None]
  - GENITAL HAEMORRHAGE [None]
  - HEADACHE [None]
  - IUCD COMPLICATION [None]
  - LOSS OF LIBIDO [None]
  - MOOD ALTERED [None]
  - VAGINITIS BACTERIAL [None]
  - VOMITING [None]
